FAERS Safety Report 5008312-8 (Version None)
Quarter: 2006Q2

REPORT INFORMATION
  Report Type: 
  Country: None (occurrence: None)
  Receive Date: 20060523
  Receipt Date: 20060512
  Transmission Date: 20061013
  Serious: Yes (Other)
  Sender: FDA-Public Use
  Company Number: IE-JNJFOC-20060503397

PATIENT
  Age: 78 Year
  Sex: Female

DRUGS (8)
  1. LIPRINEL CAP [Suspect]
     Indication: DRUG USE FOR UNKNOWN INDICATION
     Route: 048
  2. FRUSEMIDE [Concomitant]
     Route: 065
  3. DALMANE [Concomitant]
     Route: 065
  4. NORMACOL [Concomitant]
     Route: 065
  5. NORMACOL [Concomitant]
     Route: 065
  6. KEFLEX [Concomitant]
     Route: 065
  7. ASPIRIN [Concomitant]
     Route: 065
  8. LANSOPRAZOLE [Concomitant]
     Route: 065

REACTIONS (1)
  - HEPATIC FUNCTION ABNORMAL [None]
